FAERS Safety Report 21568044 (Version 1)
Quarter: 2022Q4

REPORT INFORMATION
  Report Type: Report from Study
  Country: CO (occurrence: CO)
  Receive Date: 20221108
  Receipt Date: 20221108
  Transmission Date: 20230113
  Serious: Yes (Other)
  Sender: FDA-Public Use
  Company Number: CO-ALLERGAN-2236502US

PATIENT
  Sex: Female
  Weight: 70 kg

DRUGS (2)
  1. BOTULINUM TOXIN TYPE A [Suspect]
     Active Substance: BOTULINUM TOXIN TYPE A
     Indication: Migraine
     Dosage: 200 UNITS, SINGLE
     Route: 030
     Dates: start: 20220710, end: 20220719
  2. BOTULINUM TOXIN TYPE A [Suspect]
     Active Substance: BOTULINUM TOXIN TYPE A
     Dosage: 200 UNITS, SINGLE
     Route: 030
     Dates: start: 20211011, end: 20211011

REACTIONS (14)
  - Gastric disorder [Recovering/Resolving]
  - Loss of consciousness [Recovering/Resolving]
  - Cyanosis [Recovering/Resolving]
  - Dyskinesia [Not Recovered/Not Resolved]
  - Myositis [Not Recovered/Not Resolved]
  - Fall [Recovered/Resolved]
  - Anal incontinence [Recovering/Resolving]
  - Wound [Recovering/Resolving]
  - White blood cell count increased [Not Recovered/Not Resolved]
  - Hypotension [Recovering/Resolving]
  - Dysstasia [Unknown]
  - Head injury [Unknown]
  - Headache [Not Recovered/Not Resolved]
  - Vision blurred [Recovering/Resolving]

NARRATIVE: CASE EVENT DATE: 20220401
